FAERS Safety Report 13472804 (Version 2)
Quarter: 2017Q2

REPORT INFORMATION
  Report Type: Spontaneous
  Country: US (occurrence: SD)
  Receive Date: 20170424
  Receipt Date: 20170428
  Transmission Date: 20170830
  Serious: Yes (Other)
  Sender: FDA-Public Use
  Company Number: US-PFIZER INC-2017172820

PATIENT
  Age: 19 Year
  Sex: Male
  Weight: 106.5 kg

DRUGS (2)
  1. HEROIN [Concomitant]
     Active Substance: DIAMORPHINE
     Dosage: UNK
  2. VIAGRA [Suspect]
     Active Substance: SILDENAFIL CITRATE
     Dosage: UNK, 2X/DAY
     Route: 048
     Dates: start: 20020123

REACTIONS (3)
  - Penile haemorrhage [Unknown]
  - Erection increased [Unknown]
  - Intentional product misuse [Unknown]
